FAERS Safety Report 13944862 (Version 2)
Quarter: 2017Q3

REPORT INFORMATION
  Report Type: Report from Study
  Country: TR (occurrence: TR)
  Receive Date: 20170907
  Receipt Date: 20170928
  Transmission Date: 20171128
  Serious: No
  Sender: FDA-Public Use
  Company Number: TR-ROCHE-1990326

PATIENT
  Age: 50 Year
  Sex: Female

DRUGS (1)
  1. HERCEPTIN [Suspect]
     Active Substance: TRASTUZUMAB
     Indication: BREAST CANCER METASTATIC
     Dosage: ONCE IN 3 WEEKS?244.8 DOSAGE
     Route: 065
     Dates: start: 2016

REACTIONS (2)
  - Off label use [Unknown]
  - Intentional product use issue [Unknown]
